FAERS Safety Report 8808045 (Version 1)
Quarter: 2012Q4

REPORT INFORMATION
  Report Type: 
  Country: DE (occurrence: DE)
  Receive Date: 20120925
  Receipt Date: 20120925
  Transmission Date: 20130627
  Serious: Yes (Hospitalization)
  Sender: FDA-Public Use
  Company Number: DE-MYLANLABS-2012S1019237

PATIENT
  Age: 43 Year
  Sex: Male

DRUGS (4)
  1. ROPINIROLE [Suspect]
     Indication: PARKINSON^S DISEASE
     Dosage: up to 90mg/day
     Route: 065
  2. BENSERAZIDE\LEVODOPA [Suspect]
     Indication: PARKINSON^S DISEASE
     Dosage: up to 900/225 mg/day
  3. AMANTADINE [Suspect]
     Indication: PARKINSONIAN CRISIS
     Dosage: 300mg/day
     Route: 065
  4. RASAGILINE [Suspect]
     Indication: PARKINSON^S DISEASE
     Dosage: 1mg/day
     Route: 065

REACTIONS (3)
  - Impulse-control disorder [Recovering/Resolving]
  - Psychotic disorder [Recovering/Resolving]
  - Drug abuse [Recovering/Resolving]
